FAERS Safety Report 22773868 (Version 3)
Quarter: 2023Q4

REPORT INFORMATION
  Report Type: Report from Study
  Country: US (occurrence: US)
  Receive Date: 20230801
  Receipt Date: 20231019
  Transmission Date: 20240110
  Serious: Yes (Death, Hospitalization)
  Sender: FDA-Public Use
  Company Number: US-MORPHOSYS US-2023-MOR004495-US

PATIENT
  Age: 79 Year
  Sex: Male
  Weight: 80.1 kg

DRUGS (16)
  1. MONJUVI [Suspect]
     Active Substance: TAFASITAMAB-CXIX
     Indication: Diffuse large B-cell lymphoma
     Dosage: 12 MILLIGRAM/KILOGRAM, ONCE
     Route: 042
     Dates: start: 20221018, end: 20231013
  2. LENALIDOMIDE [Suspect]
     Active Substance: LENALIDOMIDE
     Indication: Diffuse large B-cell lymphoma
     Dosage: 15 MILLIGRAM, DAY 1-21 OF 28 DAY
     Route: 048
     Dates: start: 20221216, end: 20230707
  3. LENALIDOMIDE [Suspect]
     Active Substance: LENALIDOMIDE
     Dosage: UNK
     Route: 048
     Dates: start: 20230709
  4. ALIROCUMAB [Concomitant]
     Active Substance: ALIROCUMAB
     Indication: Hypertension
     Dosage: 75 MILLIGRAM, Q2WEEKS
     Route: 058
     Dates: start: 20220616, end: 20231013
  5. ASPIRIN [Concomitant]
     Active Substance: ASPIRIN
     Indication: Hypertension
     Dosage: 81 MILLIGRAM, QD
     Route: 048
     Dates: start: 20220920, end: 20231013
  6. CARVEDILOL [Concomitant]
     Active Substance: CARVEDILOL
     Indication: Hypertension
     Dosage: 12.5 MILLIGRAM, BID WITH MEALS
     Route: 048
     Dates: start: 20220930, end: 20231013
  7. FINASTERIDE [Concomitant]
     Active Substance: FINASTERIDE
     Indication: Benign prostatic hyperplasia
     Dosage: 5 MILLIGRAM, QD
     Route: 048
     Dates: start: 2022, end: 20231013
  8. TAMSULOSIN [Concomitant]
     Active Substance: TAMSULOSIN
     Indication: Benign prostatic hyperplasia
     Dosage: 0.4 MILLIGRAM, HS
     Route: 048
     Dates: start: 20220918, end: 20231013
  9. TESTOSTERONE [Concomitant]
     Active Substance: TESTOSTERONE
     Indication: Erectile dysfunction
     Dosage: 75 MILLIGRAM
     Route: 048
     Dates: start: 20220928, end: 20231013
  10. TESTOSTERONE [Concomitant]
     Active Substance: TESTOSTERONE
     Dosage: 75 MILLIGRAM, EVERY 3-6 MONTHS
     Route: 048
     Dates: start: 20130928
  11. ACETAMINOPHEN\HYDROCODONE [Concomitant]
     Active Substance: ACETAMINOPHEN\HYDROCODONE
     Indication: Dyspnoea
     Dosage: 4 TABLET, QID
     Route: 048
     Dates: start: 20221208, end: 20231013
  12. ONDANSETRON [Concomitant]
     Active Substance: ONDANSETRON
     Indication: Nausea
     Dosage: 4 MILLIGRAM, Q6H AS NEEDED
     Route: 042
     Dates: start: 20221208
  13. OXYCODONE [Concomitant]
     Active Substance: OXYCODONE
     Indication: Dyspnoea
     Dosage: 10 MILLIGRAM, Q4H AS NEEDED
     Route: 048
     Dates: start: 20221208
  14. LACTOBACILLUS ACIDOPHILUS [Concomitant]
     Active Substance: LACTOBACILLUS ACIDOPHILUS
     Indication: Supplementation therapy
     Dosage: 1 TABLET, HS
     Route: 048
     Dates: start: 20220128, end: 20231013
  15. LOVENOX [Concomitant]
     Active Substance: ENOXAPARIN SODIUM
     Indication: Dyspnoea
     Dosage: 40 MILLIGRAM, QD
     Route: 058
     Dates: start: 20221207
  16. DECADRON [Concomitant]
     Active Substance: DEXAMETHASONE
     Indication: COVID-19 pneumonia
     Dosage: 6 MILLIGRAM, QD
     Route: 048
     Dates: start: 20221229

REACTIONS (2)
  - Acute respiratory failure [Fatal]
  - Respiratory failure [Recovered/Resolved]

NARRATIVE: CASE EVENT DATE: 20230706
